FAERS Safety Report 6601914-4 (Version None)
Quarter: 2010Q1

REPORT INFORMATION
  Report Type: 
  Country: None (occurrence: None)
  Receive Date: 20100225
  Receipt Date: 20100216
  Transmission Date: 20100710
  Serious: Yes (Hospitalization, Other)
  Sender: FDA-Public Use
  Company Number: ES-PFIZER INC-2009252838

PATIENT
  Age: 79 Year
  Sex: Male

DRUGS (6)
  1. PHENYTOIN SODIUM CAP [Suspect]
     Dosage: UNK
  2. VALPROATE SODIUM [Concomitant]
     Dosage: 500 MG, 3X/DAY
  3. NORVASC [Concomitant]
     Dosage: 10 MG, 1X/DAY
  4. CARDYL [Concomitant]
     Dosage: 80 MG, 1X/DAY
  5. RISPERDAL [Concomitant]
     Dosage: 1 MG, 1X/DAY
  6. OMEPRAZOL [Concomitant]
     Dosage: 20 MG, 1X/DAY

REACTIONS (4)
  - ALTERED STATE OF CONSCIOUSNESS [None]
  - ANTICONVULSANT DRUG LEVEL DECREASED [None]
  - DRUG INEFFECTIVE [None]
  - PSYCHOMOTOR HYPERACTIVITY [None]
